FAERS Safety Report 6148350-5 (Version None)
Quarter: 2009Q2

REPORT INFORMATION
  Report Type: 
  Country: None (occurrence: None)
  Receive Date: 20090408
  Receipt Date: 20090325
  Transmission Date: 20091009
  Serious: Yes (Hospitalization)
  Sender: FDA-Public Use
  Company Number: FR-JNJFOC-20090307142

PATIENT
  Age: 64 Year
  Sex: Male

DRUGS (5)
  1. RISPERDAL [Suspect]
     Indication: DRUG USE FOR UNKNOWN INDICATION
     Route: 048
  2. NEORAL [Concomitant]
     Route: 048
  3. NEORAL [Concomitant]
     Indication: DRUG USE FOR UNKNOWN INDICATION
     Route: 048
  4. CORTANCYL [Concomitant]
     Route: 048
  5. CORTANCYL [Concomitant]
     Indication: DRUG USE FOR UNKNOWN INDICATION
     Route: 048

REACTIONS (8)
  - COMPLICATIONS OF TRANSPLANTED KIDNEY [None]
  - CONVULSION [None]
  - CSF CELL COUNT INCREASED [None]
  - GAIT DISTURBANCE [None]
  - PNEUMONIA ASPIRATION [None]
  - PYREXIA [None]
  - RENAL FAILURE [None]
  - SYNCOPE [None]
